FAERS Safety Report 13063978 (Version 2)
Quarter: 2017Q1

REPORT INFORMATION
  Report Type: Spontaneous
  Country: US (occurrence: US)
  Receive Date: 20161227
  Receipt Date: 20170103
  Transmission Date: 20170428
  Serious: No
  Sender: FDA-Public Use
  Company Number: US-PFIZER INC-2016596285

PATIENT
  Age: 77 Year
  Sex: Female
  Weight: 73 kg

DRUGS (2)
  1. PREMARIN [Suspect]
     Active Substance: ESTROGENS, CONJUGATED
     Indication: VULVOVAGINAL DISCOMFORT
  2. PREMARIN [Suspect]
     Active Substance: ESTROGENS, CONJUGATED
     Indication: URINARY TRACT INFECTION
     Dosage: 0.5 MG, 1X/DAY (EVERY DAY FOR 21 DAYS AND OFF FOR 7 DAYS)
     Route: 067
     Dates: start: 201610, end: 201611

REACTIONS (4)
  - Alopecia [Recovering/Resolving]
  - Hair texture abnormal [Recovering/Resolving]
  - General physical condition abnormal [Unknown]
  - Product use issue [Unknown]

NARRATIVE: CASE EVENT DATE: 201611
